FAERS Safety Report 10045732 (Version 1)
Quarter: 2014Q1

REPORT INFORMATION
  Report Type: Spontaneous
  Country: US (occurrence: US)
  Receive Date: 20140328
  Receipt Date: 20140328
  Transmission Date: 20141002
  Serious: No
  Sender: FDA-Public Use
  Company Number: US-B.I. PHARMACEUTICALS,INC./RIDGEFIELD-2014-BI-12704BP

PATIENT
  Sex: Female

DRUGS (1)
  1. COMBIVENT [Suspect]
     Indication: BRONCHIECTASIS
     Dosage: STRENGTH: 18 MCG / 103 MCG; DAILY DOSE: 72 MCG/400 MCG
     Route: 055
     Dates: start: 2010, end: 2014

REACTIONS (1)
  - Off label use [Unknown]
